FAERS Safety Report 6042579-2 (Version None)
Quarter: 2009Q1

REPORT INFORMATION
  Report Type: 
  Country: None (occurrence: None)
  Receive Date: 20090119
  Receipt Date: 20090114
  Transmission Date: 20090719
  Serious: Yes (Other)
  Sender: FDA-Public Use
  Company Number: US-JNJFOC-20090103337

PATIENT
  Age: 67 Year
  Sex: Female

DRUGS (1)
  1. DURAGESIC-100 [Suspect]
     Indication: BACK PAIN
     Dosage: USED 100 UG/HR AND 25 UG/HR
     Route: 062

REACTIONS (1)
  - INTRAOCULAR PRESSURE INCREASED [None]
